FAERS Safety Report 12487490 (Version 1)
Quarter: 2016Q2

REPORT INFORMATION
  Report Type: Spontaneous
  Country: US (occurrence: US)
  Receive Date: 20160622
  Receipt Date: 20160622
  Transmission Date: 20160815
  Serious: Yes (Hospitalization, Other)
  Sender: FDA-Public Use
  Company Number: US-BAUSCH-BL-2016-014716

PATIENT
  Age: 84 Year
  Sex: Male
  Weight: 60 kg

DRUGS (10)
  1. VORICONAZOLE. [Interacting]
     Active Substance: VORICONAZOLE
     Route: 048
  2. METRONIDAZOLE. [Concomitant]
     Active Substance: METRONIDAZOLE
     Indication: PRODUCT USED FOR UNKNOWN INDICATION
  3. DEXAMETHASONE. [Suspect]
     Active Substance: DEXAMETHASONE
     Indication: BRAIN OEDEMA
     Route: 048
  4. VORICONAZOLE. [Interacting]
     Active Substance: VORICONAZOLE
     Dosage: 6 MG/KG (400 MG) EVERY 12 HOURS (Q12H) X 2 DOSES
     Route: 042
  5. VORICONAZOLE. [Interacting]
     Active Substance: VORICONAZOLE
     Route: 048
  6. CEFEPIME [Concomitant]
     Active Substance: CEFEPIME HYDROCHLORIDE
     Indication: PRODUCT USED FOR UNKNOWN INDICATION
  7. VORICONAZOLE. [Interacting]
     Active Substance: VORICONAZOLE
     Indication: BRAIN OEDEMA
     Route: 042
  8. VANCOMYCIN [Concomitant]
     Active Substance: VANCOMYCIN
     Indication: PRODUCT USED FOR UNKNOWN INDICATION
  9. VORICONAZOLE. [Interacting]
     Active Substance: VORICONAZOLE
     Route: 042
  10. VORICONAZOLE. [Interacting]
     Active Substance: VORICONAZOLE
     Dosage: 4 MG/KG (250 MG) Q12H FOR ONE WEEK
     Route: 042

REACTIONS (5)
  - Disease progression [Recovering/Resolving]
  - Hypophagia [Recovering/Resolving]
  - Therapeutic response decreased [Recovering/Resolving]
  - Drug interaction [Recovering/Resolving]
  - Cognitive disorder [Recovering/Resolving]
